FAERS Safety Report 9010509 (Version 1)
Quarter: 2013Q1

REPORT INFORMATION
  Report Type: Spontaneous
  Country: US (occurrence: US)
  Receive Date: 20130109
  Receipt Date: 20130109
  Transmission Date: 20140127
  Serious: No
  Sender: FDA-Public Use
  Company Number: US-JNJFOC-20130102627

PATIENT
  Sex: Male
  Weight: 90.72 kg

DRUGS (1)
  1. FENTANYL [Suspect]
     Indication: SURGERY
     Dosage: EVERY 3-4 DAYS
     Route: 062
     Dates: start: 201208

REACTIONS (1)
  - Inappropriate schedule of drug administration [Not Recovered/Not Resolved]
